FAERS Safety Report 5339364-3 (Version None)
Quarter: 2007Q2

REPORT INFORMATION
  Report Type: 
  Country: None (occurrence: None)
  Receive Date: 20070322
  Receipt Date: 20061023
  Transmission Date: 20071010
  Serious: Yes (Other)
  Sender: FDA-Public Use
  Company Number: 200613637BCC

PATIENT
  Age: 60 Year
  Sex: Female
  Weight: 79.8331 kg

DRUGS (3)
  1. ALEVE TABLETS (NAPROZEN SODIUM) [Suspect]
     Indication: ANALGESIC EFFECT
     Dosage: 220 MG, ONCE; ORAL
     Route: 048
     Dates: start: 20060827
  2. MOBIC [Concomitant]
  3. SYNTHROID [Concomitant]

REACTIONS (10)
  - AURICULAR SWELLING [None]
  - BURNING SENSATION [None]
  - DIZZINESS [None]
  - DYSPNOEA [None]
  - EYE SWELLING [None]
  - LIP SWELLING [None]
  - OEDEMA PERIPHERAL [None]
  - SHOCK [None]
  - SWELLING [None]
  - SWELLING FACE [None]
